FAERS Safety Report 17477824 (Version 4)
Quarter: 2020Q4

REPORT INFORMATION
  Report Type: Report from Study
  Country: JP (occurrence: JP)
  Receive Date: 20200228
  Receipt Date: 20201106
  Transmission Date: 20210113
  Serious: Yes (Other)
  Sender: FDA-Public Use
  Company Number: JP-BAUSCH-BL-2020-006536

PATIENT
  Age: 43 Year
  Sex: Female
  Weight: 60 kg

DRUGS (2)
  1. LUMICEF [Suspect]
     Active Substance: BRODALUMAB
     Dosage: SYRINGE, DURATION: 1 YEAR 10 MONTHS 30 DAYS
     Route: 058
     Dates: start: 20180719, end: 20200617
  2. LUMICEF [Suspect]
     Active Substance: BRODALUMAB
     Indication: PSORIATIC ARTHROPATHY
     Dosage: SYRINGE
     Route: 058
     Dates: start: 20180621, end: 20180705

REACTIONS (4)
  - Neuropathy peripheral [Unknown]
  - Asthma [Unknown]
  - Eosinophilic granulomatosis with polyangiitis [Recovering/Resolving]
  - Chronic eosinophilic rhinosinusitis [Recovered/Resolved]

NARRATIVE: CASE EVENT DATE: 201912
